FAERS Safety Report 5874942-4 (Version None)
Quarter: 2008Q3

REPORT INFORMATION
  Report Type: 
  Country: None (occurrence: None)
  Receive Date: 20080909
  Receipt Date: 20080904
  Transmission Date: 20090109
  Serious: Yes (Hospitalization)
  Sender: FDA-Public Use
  Company Number: GB-ABBOTT-08P-167-0474689-00

PATIENT
  Age: 41 Year
  Sex: Female

DRUGS (1)
  1. REDUCTIL [Suspect]
     Indication: WEIGHT CONTROL
     Dates: start: 20080610, end: 20080718

REACTIONS (6)
  - DIVERTICULITIS [None]
  - GLOBULINS INCREASED [None]
  - INTESTINAL ISCHAEMIA [None]
  - INTESTINAL OBSTRUCTION [None]
  - PERIDIVERTICULAR ABSCESS [None]
  - PLATELET COUNT INCREASED [None]
